FAERS Safety Report 12923123 (Version 2)
Quarter: 2017Q1

REPORT INFORMATION
  Report Type: Spontaneous
  Country: GB (occurrence: GB)
  Receive Date: 20161108
  Receipt Date: 20170117
  Transmission Date: 20170428
  Serious: Yes (Life-Threatening, Hospitalization, Other)
  Sender: FDA-Public Use
  Company Number: GB-PFM-2016-01272

PATIENT
  Age: 43 Year
  Sex: Male

DRUGS (1)
  1. PROPRANOLOL [Suspect]
     Active Substance: PROPRANOLOL HYDROCHLORIDE
     Indication: MIGRAINE
     Dosage: 80 MG, TWICE AT 8:00 AND AT 18:00
     Route: 065
     Dates: start: 20160124

REACTIONS (5)
  - Drug administered to patient of inappropriate age [Unknown]
  - Gastrointestinal infection [Unknown]
  - Off label use [Unknown]
  - Product use issue [Unknown]
  - Anaphylactic reaction [Recovered/Resolved]

NARRATIVE: CASE EVENT DATE: 20160124
